FAERS Safety Report 4863099-4 (Version None)
Quarter: 2005Q4

REPORT INFORMATION
  Report Type: 
  Country: None (occurrence: None)
  Receive Date: 20051219
  Receipt Date: 20051205
  Transmission Date: 20060501
  Serious: Yes (Hospitalization, Other)
  Sender: FDA-Public Use
  Company Number: HQWYE909908DEC05

PATIENT
  Age: 65 Year
  Sex: Male

DRUGS (17)
  1. RAPAMUNE [Suspect]
     Indication: PROPHYLAXIS AGAINST TRANSPLANT REJECTION
     Dosage: 5 MG 1X PER 1 DAY, ORAL; SEE IMAGE
     Route: 048
     Dates: end: 20050101
  2. RAPAMUNE [Suspect]
     Indication: PROPHYLAXIS AGAINST TRANSPLANT REJECTION
     Dosage: 5 MG 1X PER 1 DAY, ORAL; SEE IMAGE
     Route: 048
     Dates: start: 20050101
  3. PREDNISONE [Concomitant]
  4. PROGRAF [Concomitant]
  5. VALCYTE [Concomitant]
  6. SEPTRA DS [Concomitant]
  7. MYCELEX [Concomitant]
  8. ACIPHEX [Concomitant]
  9. TOPRAL (SULTOPRIDE) [Concomitant]
  10. AVANDIA [Concomitant]
  11. LANTUS [Concomitant]
  12. OXYBUTYNIN CHLORIDE [Concomitant]
  13. LEVAQUIN [Concomitant]
  14. NORVASC [Concomitant]
  15. LASIX [Concomitant]
  16. CLONIDINE [Concomitant]
  17. INSULIN [Concomitant]

REACTIONS (9)
  - ATELECTASIS [None]
  - BLOOD GLUCOSE INCREASED [None]
  - CHEST PAIN [None]
  - HAEMOGLOBIN DECREASED [None]
  - HYPERTENSION [None]
  - HYPOAESTHESIA [None]
  - HYPOVENTILATION [None]
  - IMMUNOSUPPRESSANT DRUG LEVEL INCREASED [None]
  - MUSCULOSKELETAL DISCOMFORT [None]
